FAERS Safety Report 11713214 (Version 1)
Quarter: 2015Q4

REPORT INFORMATION
  Report Type: Spontaneous
  Country: US (occurrence: US)
  Receive Date: 20151109
  Receipt Date: 20151109
  Transmission Date: 20160304
  Serious: No
  Sender: FDA-Public Use
  Company Number: US-ASTRAZENECA-2015SF05587

PATIENT
  Age: 7 Month
  Sex: Male
  Weight: 11.3 kg

DRUGS (3)
  1. FLOVENT [Concomitant]
     Active Substance: FLUTICASONE PROPIONATE
     Route: 055
     Dates: start: 201510
  2. ALBUTEROL AIR CHAMBER [Concomitant]
     Dosage: AS REQUIRED
     Route: 055
     Dates: start: 201506
  3. SYNAGIS [Suspect]
     Active Substance: PALIVIZUMAB
     Indication: PREMATURE BABY
     Route: 030
     Dates: start: 201501, end: 201505

REACTIONS (3)
  - Product use issue [Unknown]
  - Pneumonia [Unknown]
  - Bronchopulmonary dysplasia [Unknown]

NARRATIVE: CASE EVENT DATE: 201506
